FAERS Safety Report 9547438 (Version 1)
Quarter: 2013Q2

REPORT INFORMATION
  Report Type: Spontaneous
  Country: US (occurrence: None)
  Receive Date: 20130524
  Receipt Date: 20130524
  Transmission Date: 20140414
  Serious: No
  Sender: FDA-Public Use
  Company Number: PHEH2013US004351

PATIENT
  Sex: Female

DRUGS (5)
  1. GILENYA (FINGOLIMOD) CAPSULE, 0.5MG [Suspect]
     Indication: MULTIPLE SCLEROSIS
     Route: 048
     Dates: start: 20120131
  2. NEXIUM [Concomitant]
  3. BACLOFEN [Concomitant]
  4. ZONISAMIDE [Concomitant]
  5. ADDERALL [Concomitant]

REACTIONS (3)
  - Blood count abnormal [None]
  - Fatigue [None]
  - Inappropriate schedule of drug administration [None]
